FAERS Safety Report 24990840 (Version 2)
Quarter: 2025Q1

REPORT INFORMATION
  Report Type: Spontaneous
  Country: US (occurrence: US)
  Receive Date: 20250220
  Receipt Date: 20250228
  Transmission Date: 20250409
  Serious: Yes (Life-Threatening, Hospitalization)
  Sender: NEUROCRINE BIOSCIENCES
  Company Number: US-NEUROCRINE BIOSCIENCES INC.-2025NBI02021

PATIENT
  Age: 43 Year
  Sex: Male

DRUGS (6)
  1. INGREZZA [Suspect]
     Active Substance: VALBENAZINE
     Indication: Product used for unknown indication
     Route: 065
     Dates: start: 20250205
  2. INVEGA [Concomitant]
     Active Substance: PALIPERIDONE
  3. HALDOL [Concomitant]
     Active Substance: HALOPERIDOL
  4. BUSPAR [Concomitant]
     Active Substance: BUSPIRONE HYDROCHLORIDE
     Dates: start: 20250131
  5. BUSPAR [Concomitant]
     Active Substance: BUSPIRONE HYDROCHLORIDE
     Dates: start: 20250121
  6. BUSPAR [Concomitant]
     Active Substance: BUSPIRONE HYDROCHLORIDE

REACTIONS (4)
  - Neuroleptic malignant syndrome [Unknown]
  - Oxygen saturation decreased [Recovering/Resolving]
  - Oliguria [Unknown]
  - Hiccups [Unknown]

NARRATIVE: CASE EVENT DATE: 20250201
